FAERS Safety Report 8784115 (Version 1)
Quarter: 2012Q4

REPORT INFORMATION
  Report Type: Spontaneous
  Country: US (occurrence: None)
  Receive Date: 20120829
  Receipt Date: 20120829
  Transmission Date: 20130627
  Serious: Yes (Other)
  Sender: FDA-Public Use
  Company Number: AUG-APL-2012-03366

PATIENT
  Age: 34 Year
  Sex: Male
  Weight: 113.3 kg

DRUGS (4)
  1. VENLAFAXINE [Suspect]
     Dosage: (75 mg, 1 in 1 D)
     Route: 048
     Dates: start: 2011, end: 201106
  2. EFFEXOR XR [Suspect]
     Dates: start: 201204
  3. STRATTERA (ATOMOXETINE HYDROCHLORIDE) [Concomitant]
  4. LITHIUM [Concomitant]

REACTIONS (2)
  - Depression [None]
  - Mania [None]
